FAERS Safety Report 5603068-X (Version None)
Quarter: 2008Q1

REPORT INFORMATION
  Report Type: 
  Country: None (occurrence: None)
  Receive Date: 20080125
  Receipt Date: 20080115
  Transmission Date: 20080703
  Serious: Yes (Other)
  Sender: FDA-Public Use
  Company Number: US-PFIZER INC-2007108088

PATIENT
  Sex: Male
  Weight: 91 kg

DRUGS (5)
  1. LIPITOR [Suspect]
     Indication: HYPERCHOLESTEROLAEMIA
  2. LIPITOR [Suspect]
     Indication: BLOOD CHOLESTEROL INCREASED
  3. NORVASC [Suspect]
     Indication: ANGINA PECTORIS
  4. ATENOLOL [Concomitant]
  5. ASPIRIN [Concomitant]

REACTIONS (3)
  - BLOOD CREATININE INCREASED [None]
  - NEPHRITIS [None]
  - RENAL IMPAIRMENT [None]
